FAERS Safety Report 10463637 (Version 1)
Quarter: 2014Q3

REPORT INFORMATION
  Report Type: Spontaneous
  Country: AL (occurrence: None)
  Receive Date: 20140917
  Receipt Date: 20140917
  Transmission Date: 20150326
  Serious: Yes (Death, Hospitalization)
  Sender: FDA-Public Use
  Company Number: IPC201409-000463

PATIENT
  Age: 42 Year
  Sex: Female

DRUGS (2)
  1. BISOPROLOL [Concomitant]
     Active Substance: BISOPROLOL
  2. METFORMIN HYDROCHLORIDE (METFORMIN HYDROCHLORIDE) (METFORMIN HYDROCHLORIDE) [Suspect]
     Active Substance: METFORMIN HYDROCHLORIDE
     Indication: TYPE 2 DIABETES MELLITUS

REACTIONS (14)
  - Blindness [None]
  - Overdose [None]
  - Acute respiratory failure [None]
  - Blood sodium decreased [None]
  - Sopor [None]
  - Metabolic acidosis [None]
  - Renal failure acute [None]
  - Circulatory collapse [None]
  - Lactic acidosis [None]
  - Multi-organ failure [None]
  - Cardiac failure [None]
  - Coma [None]
  - Blood glucose increased [None]
  - Hypotension [None]
